FAERS Safety Report 12943323 (Version 1)
Quarter: 2016Q4

REPORT INFORMATION
  Report Type: Spontaneous
  Country: US (occurrence: US)
  Receive Date: 20161115
  Receipt Date: 20161115
  Transmission Date: 20170207
  Serious: No
  Sender: FDA-Public Use
  Company Number: US-NOVOPROD-494412

PATIENT
  Age: 78 Year
  Sex: Female

DRUGS (3)
  1. VAGIFEM LD [Suspect]
     Active Substance: ESTRADIOL
     Indication: ATROPHIC VULVOVAGINITIS
     Dosage: 2 TAB, PRN PER WEEK
     Route: 067
  2. VAGIFEM LD [Suspect]
     Active Substance: ESTRADIOL
     Dosage: 4 TAB, PER WEEK
     Route: 067
  3. VAGIFEM LD [Suspect]
     Active Substance: ESTRADIOL
     Indication: INCONTINENCE
     Dosage: 2 TAB, PRN PER WEEK
     Route: 067

REACTIONS (2)
  - Off label use [Unknown]
  - Drug ineffective [Not Recovered/Not Resolved]
